FAERS Safety Report 24018710 (Version 1)
Quarter: 2024Q2

REPORT INFORMATION
  Report Type: Spontaneous
  Country: CA (occurrence: CA)
  Receive Date: 20240627
  Receipt Date: 20240627
  Transmission Date: 20240715
  Serious: Yes (Other)
  Sender: FDA-Public Use
  Company Number: None

PATIENT
  Age: 73 Year
  Sex: Female

DRUGS (1)
  1. METHOTREXATE [Suspect]
     Active Substance: METHOTREXATE
     Indication: Rheumatoid arthritis
     Route: 048

REACTIONS (4)
  - Cholelithiasis [Recovering/Resolving]
  - Condition aggravated [Recovering/Resolving]
  - Lower respiratory tract infection [Recovering/Resolving]
  - Influenza [Recovering/Resolving]
